FAERS Safety Report 21936677 (Version 1)
Quarter: 2023Q1

REPORT INFORMATION
  Report Type: Spontaneous
  Country: US (occurrence: US)
  Receive Date: 20230201
  Receipt Date: 20230201
  Transmission Date: 20230418
  Serious: No
  Sender: FDA-Public Use
  Company Number: US-AMGEN-USASP2022228462

PATIENT
  Age: 74 Year
  Sex: Female

DRUGS (10)
  1. OTEZLA [Suspect]
     Active Substance: APREMILAST
     Indication: Psoriasis
     Dosage: 30 MILLIGRAM, BID
     Route: 048
     Dates: start: 20221003
  2. CLOBETASOL PROPIONATE [Concomitant]
     Active Substance: CLOBETASOL PROPIONATE
     Dosage: 0.05 PERCENT
     Route: 065
  3. HYDROCHLOROTHIAZIDE [Concomitant]
     Active Substance: HYDROCHLOROTHIAZIDE
     Dosage: 12.5 MILLIGRAM
     Route: 065
  4. TYLENOL [Concomitant]
     Active Substance: ACETAMINOPHEN
     Dosage: 325 MILLIGRAM
     Route: 065
  5. VALSARTAN [Concomitant]
     Active Substance: VALSARTAN
     Dosage: 320 MILLIGRAM
     Route: 065
  6. XARELTO [Concomitant]
     Active Substance: RIVAROXABAN
     Dosage: 20 MILLIGRAM
     Route: 065
  7. ASPIRIN [Concomitant]
     Active Substance: ASPIRIN
     Dosage: 81 MILLIGRAM
     Route: 065
  8. IBUPROFEN [Concomitant]
     Active Substance: IBUPROFEN
     Dosage: 200 MILLIGRAM
     Route: 065
  9. TRIAMCINOLONE [Concomitant]
     Active Substance: TRIAMCINOLONE
     Dosage: 0.1 PERCENT
     Route: 065
  10. VITAMIN D3 [Concomitant]
     Active Substance: CHOLECALCIFEROL
     Dosage: 5000 UNIT
     Route: 065

REACTIONS (8)
  - Hypokinesia [Not Recovered/Not Resolved]
  - Urinary tract infection [Not Recovered/Not Resolved]
  - Arthritis [Not Recovered/Not Resolved]
  - Arthralgia [Not Recovered/Not Resolved]
  - Psoriasis [Not Recovered/Not Resolved]
  - Nausea [Not Recovered/Not Resolved]
  - Faeces soft [Not Recovered/Not Resolved]
  - Tension headache [Not Recovered/Not Resolved]

NARRATIVE: CASE EVENT DATE: 20221001
